FAERS Safety Report 7387505-9 (Version None)
Quarter: 2011Q1

REPORT INFORMATION
  Report Type: 
  Country: None (occurrence: None)
  Receive Date: 20110331
  Receipt Date: 20110304
  Transmission Date: 20110831
  Serious: No
  Sender: FDA-Public Use
  Company Number: US-B.I. PHARMACEUTICALS,INC./RIDGEFIELD-2011-BP-06833BP

PATIENT
  Age: 73 Year
  Sex: Male

DRUGS (7)
  1. DIGOXIN [Concomitant]
     Indication: CARDIAC DISORDER
  2. PRADAXA [Suspect]
     Indication: ATRIAL FIBRILLATION
     Dosage: 300 MG
     Route: 048
     Dates: start: 20110201
  3. AVAPRO [Concomitant]
     Indication: HYPERTENSION
  4. PLAVIX [Concomitant]
     Indication: ATRIAL FIBRILLATION
  5. SULAR [Concomitant]
     Indication: HYPERTENSION
  6. LASIX [Concomitant]
     Indication: FLUID RETENTION
  7. ASPIRIN [Concomitant]
     Indication: ATRIAL FIBRILLATION

REACTIONS (2)
  - GASTROOESOPHAGEAL REFLUX DISEASE [None]
  - ARTHRALGIA [None]
